FAERS Safety Report 19201520 (Version 1)
Quarter: 2021Q2

REPORT INFORMATION
  Report Type: Report from Study
  Country: US (occurrence: US)
  Receive Date: 20210430
  Receipt Date: 20210430
  Transmission Date: 20210717
  Serious: Yes (Hospitalization)
  Sender: FDA-Public Use
  Company Number: US-JNJFOC-20210444687

PATIENT
  Age: 73 Year
  Sex: Male
  Weight: 107.7 kg

DRUGS (2)
  1. WARFARIN [Concomitant]
     Active Substance: WARFARIN
  2. SELEXIPAG [Suspect]
     Active Substance: SELEXIPAG
     Indication: PULMONARY ARTERIAL HYPERTENSION
     Route: 048

REACTIONS (3)
  - Pneumonia [Unknown]
  - Coronary arterial stent insertion [Unknown]
  - Fluid retention [Unknown]

NARRATIVE: CASE EVENT DATE: 20210405
